FAERS Safety Report 8398642 (Version 14)
Quarter: 2013Q4

REPORT INFORMATION
  Report Type: Report from Study
  Country: US (occurrence: US)
  Receive Date: 20120209
  Receipt Date: 20131022
  Transmission Date: 20140711
  Serious: Yes (Death, Other)
  Sender: FDA-Public Use
  Company Number: US-ROCHE-1019949

PATIENT
  Age: 60 Year
  Sex: Male
  Weight: 104.36 kg

DRUGS (14)
  1. PREDNISONE [Concomitant]
     Indication: RHEUMATOID ARTHRITIS
     Route: 048
     Dates: start: 1999
  2. PREDNISONE [Concomitant]
     Route: 048
     Dates: start: 20050621
  3. ASPIRIN [Concomitant]
     Indication: CARDIOVASCULAR EVENT PROPHYLAXIS
     Route: 048
     Dates: start: 20050630
  4. ASPIRIN [Concomitant]
     Route: 048
     Dates: start: 2008
  5. TYLENOL EXTRA STRENGTH [Concomitant]
     Indication: RHEUMATOID ARTHRITIS
     Route: 048
     Dates: start: 2008
  6. TYLENOL EXTRA STRENGTH [Concomitant]
     Route: 048
     Dates: start: 20050630
  7. VIAGRA [Concomitant]
     Indication: ERECTILE DYSFUNCTION
     Route: 048
     Dates: start: 20110715
  8. ZESTRIL [Concomitant]
     Indication: HYPERTENSION
     Route: 048
     Dates: start: 1998
  9. BLINDED TOCILIZUMAB [Suspect]
     Indication: RHEUMATOID ARTHRITIS
     Dosage: MOST RECENT DOSE TAKEN ON 04/JAN/2012
     Route: 058
     Dates: start: 20110803, end: 20120104
  10. TOCILIZUMAB [Suspect]
     Indication: RHEUMATOID ARTHRITIS
     Dosage: MOST RECENT DOSE PRIOR TO SAE: 01/FEB/2012
     Route: 058
     Dates: start: 20120118, end: 20120214
  11. METHOTREXATE [Concomitant]
     Indication: RHEUMATOID ARTHRITIS
     Route: 048
     Dates: start: 1999, end: 20111201
  12. METHOTREXATE [Concomitant]
     Route: 048
     Dates: start: 20111221
  13. FOLIC ACID [Concomitant]
     Indication: RHEUMATOID ARTHRITIS
     Route: 048
     Dates: start: 1999
  14. FOLIC ACID [Concomitant]
     Route: 048
     Dates: start: 20050621

REACTIONS (5)
  - Angina pectoris [Fatal]
  - Deep vein thrombosis [Unknown]
  - Sinusitis [Not Recovered/Not Resolved]
  - Cervical radiculopathy [Not Recovered/Not Resolved]
  - Epistaxis [Recovered/Resolved]
